FAERS Safety Report 17429021 (Version 1)
Quarter: 2020Q1

REPORT INFORMATION
  Report Type: Spontaneous
  Country: US (occurrence: US)
  Receive Date: 20200131
  Receipt Date: 20200131
  Transmission Date: 20200409
  Serious: Yes (Other)
  Sender: FDA-Public Use
  Company Number: None

PATIENT
  Age: 70 Year
  Sex: Female
  Weight: 70.76 kg

DRUGS (10)
  1. BENZONATATE 200MG CAPSULES [Suspect]
     Active Substance: BENZONATATE
     Indication: BRONCHITIS
     Dosage: ?          QUANTITY:21 DF DOSAGE FORM;??3 PILLS ONLY
     Route: 048
     Dates: start: 20191216, end: 20191217
  2. MAG [Concomitant]
  3. SYNTHROID [Concomitant]
     Active Substance: LEVOTHYROXINE SODIUM
  4. ATORVASTATIN [Concomitant]
     Active Substance: ATORVASTATIN
  5. VIT -  D3 [Concomitant]
  6. TAMOXIFEN [Concomitant]
     Active Substance: TAMOXIFEN
  7. COLLAGEN [Concomitant]
     Active Substance: COLLAGEN
  8. CALCIUM [Concomitant]
     Active Substance: CALCIUM
  9. BIOTIN [Concomitant]
     Active Substance: BIOTIN
  10. ZINC. [Concomitant]
     Active Substance: ZINC

REACTIONS (4)
  - Syncope [None]
  - Fall [None]
  - Face injury [None]
  - Joint injury [None]

NARRATIVE: CASE EVENT DATE: 20190217
